FAERS Safety Report 6398010-0 (Version None)
Quarter: 2009Q4

REPORT INFORMATION
  Report Type: 
  Country: None (occurrence: None)
  Receive Date: 20091013
  Receipt Date: 20091007
  Transmission Date: 20100525
  Serious: Yes (Hospitalization, Other)
  Sender: FDA-Public Use
  Company Number: RU-ROCHE-642747

PATIENT
  Age: 59 Year
  Sex: Female

DRUGS (1)
  1. BONIVA [Suspect]
     Indication: OSTEOPOROSIS
     Dosage: FREQUENCY REPORTED AS 1 TAB/ MONTH
     Route: 048
     Dates: start: 20090401, end: 20090401

REACTIONS (7)
  - ARTHRALGIA [None]
  - BONE PAIN [None]
  - DYSGEUSIA [None]
  - JOINT CREPITATION [None]
  - MALAISE [None]
  - PAIN [None]
  - WEIGHT DECREASED [None]
